FAERS Safety Report 6275576-2 (Version None)
Quarter: 2009Q3

REPORT INFORMATION
  Report Type: 
  Country: None (occurrence: None)
  Receive Date: 20090721
  Receipt Date: 20090716
  Transmission Date: 20100115
  Serious: Yes (Hospitalization)
  Sender: FDA-Public Use
  Company Number: FR-WYE-G04061309

PATIENT
  Sex: Female

DRUGS (2)
  1. TAZOCILLINE [Suspect]
     Route: 042
     Dates: start: 20090621, end: 20090625
  2. MOPRAL [Concomitant]
     Dosage: UNKNOWN

REACTIONS (3)
  - AGGRESSION [None]
  - DYSPHONIA [None]
  - OBSESSIVE THOUGHTS [None]
